FAERS Safety Report 5995038-7 (Version None)
Quarter: 2008Q4

REPORT INFORMATION
  Report Type: 
  Country: None (occurrence: None)
  Receive Date: 20081212
  Receipt Date: 20080919
  Transmission Date: 20090506
  Serious: No
  Sender: FDA-Public Use
  Company Number: US-ABBOTT-08P-163-0477218-00

PATIENT
  Sex: Female

DRUGS (3)
  1. HUMIRA [Suspect]
     Indication: PSORIATIC ARTHROPATHY
     Dates: start: 20080801
  2. HUMIRA [Suspect]
     Route: 058
     Dates: start: 20080316
  3. HUMIRA [Suspect]
     Dosage: 3 INJECTIONS WEEKLY
     Route: 058
     Dates: start: 20080601, end: 20080601

REACTIONS (10)
  - COUGH [None]
  - EAR INFECTION [None]
  - INJECTION SITE ERYTHEMA [None]
  - INJECTION SITE HAEMATOMA [None]
  - INJECTION SITE PAIN [None]
  - INJECTION SITE SWELLING [None]
  - LOWER RESPIRATORY TRACT INFECTION [None]
  - OROPHARYNGEAL PAIN [None]
  - PYREXIA [None]
  - SENSORY DISTURBANCE [None]
